FAERS Safety Report 5396560-7 (Version None)
Quarter: 2007Q3

REPORT INFORMATION
  Report Type: 
  Country: None (occurrence: None)
  Receive Date: 20070725
  Receipt Date: 20070719
  Transmission Date: 20080115
  Serious: Yes (Life-Threatening, Hospitalization)
  Sender: FDA-Public Use
  Company Number: JP-ASTRAZENECA-2007SE04114

PATIENT
  Age: 95 Year
  Sex: Female

DRUGS (7)
  1. CANDESARTAN CILEXETIL [Suspect]
     Indication: HYPERTENSION
     Route: 048
     Dates: start: 20070601, end: 20070701
  2. ALLOPURINOL [Suspect]
     Route: 048
  3. EURODIN [Concomitant]
     Route: 048
  4. LASIX [Concomitant]
     Route: 065
  5. DIGOXIN [Concomitant]
     Route: 065
  6. NEUER [Concomitant]
     Route: 048
  7. TANADOPA [Concomitant]
     Route: 048

REACTIONS (2)
  - AGRANULOCYTOSIS [None]
  - DEHYDRATION [None]
